FAERS Safety Report 10175896 (Version 1)
Quarter: 2014Q2

REPORT INFORMATION
  Report Type: Spontaneous
  Country: US (occurrence: None)
  Receive Date: 20140425
  Receipt Date: 20140425
  Transmission Date: 20141212
  Serious: No
  Sender: FDA-Public Use
  Company Number: AP356-00363-SPO-US

PATIENT
  Age: 70 Year
  Sex: Female
  Weight: 142 kg

DRUGS (13)
  1. BELVIQ (LORCASERIN HYDROCHLORIDE) [Suspect]
     Indication: WEIGHT DECREASED
     Dosage: 2 IN 1 D
     Route: 048
     Dates: start: 20131016
  2. DIETARY SUPPLEMENT [Suspect]
     Dosage: 3X/DAY
     Route: 048
     Dates: start: 20131016
  3. TOPROL (METOPROLOL SUCCINATE) [Concomitant]
  4. SYNTHROID (LEVOTHYROXINE SODIUM) [Concomitant]
  5. ALLOPURINOL (ALLOPURINOL) [Concomitant]
  6. METANX (METANX) [Concomitant]
  7. ISOSORBIDE (ISOSORBIDE) [Concomitant]
  8. DIOVAN (VALSARTAN) [Concomitant]
  9. ECOTRIN (ACETYLSALICYLIC ACID) [Concomitant]
  10. BYETTA (EXENATIDE) [Concomitant]
  11. INSULIN (INSULIN) [Concomitant]
  12. CELEXA (CITALOPRAM) [Concomitant]
  13. FISH OIL (FISH OIL) [Concomitant]

REACTIONS (1)
  - Urticaria [None]
